FAERS Safety Report 15023574 (Version 1)
Quarter: 2018Q2

REPORT INFORMATION
  Report Type: Spontaneous
  Country: US (occurrence: US)
  Receive Date: 20180618
  Receipt Date: 20180618
  Transmission Date: 20180711
  Serious: No
  Sender: FDA-Public Use
  Company Number: US-TEVA-2018-US-906888

PATIENT
  Sex: Female

DRUGS (2)
  1. DESIPRAMINE [Suspect]
     Active Substance: DESIPRAMINE
     Dosage: 25 MILLIGRAM DAILY;
     Dates: start: 20180518
  2. DESIPRAMINE [Suspect]
     Active Substance: DESIPRAMINE
     Dosage: 100 MILLIGRAM DAILY;
     Dates: start: 2018

REACTIONS (6)
  - Throat irritation [Unknown]
  - Condition aggravated [Unknown]
  - Blister [Unknown]
  - Glossodynia [Unknown]
  - Dandruff [Unknown]
  - Rash [Unknown]

NARRATIVE: CASE EVENT DATE: 20180518
